FAERS Safety Report 9245302 (Version 1)
Quarter: 2013Q1

REPORT INFORMATION
  Report Type: Spontaneous
  Country: US (occurrence: None)
  Receive Date: 20121130
  Receipt Date: 20121130
  Transmission Date: 20140127
  Serious: Yes (Death, Other)
  Sender: FDA-Public Use
  Company Number: KV201200171

PATIENT
  Age: 4 None
  Sex: Female

DRUGS (1)
  1. MAKENA [Suspect]
     Indication: EXPOSURE DURING PREGNANCY
     Dates: start: 201208, end: 20120823

REACTIONS (2)
  - Death neonatal [None]
  - Premature baby [None]
